FAERS Safety Report 11678630 (Version 1)
Quarter: 2015Q4

REPORT INFORMATION
  Report Type: Spontaneous
  Country: US (occurrence: US)
  Receive Date: 20151027
  Receipt Date: 20151027
  Transmission Date: 20160304
  Serious: No
  Sender: FDA-Public Use
  Company Number: US-ELI_LILLY_AND_COMPANY-US201003008569

PATIENT
  Age: 82 Year
  Sex: Female

DRUGS (3)
  1. FORTEO [Suspect]
     Active Substance: TERIPARATIDE
     Dosage: 20 UG, DAILY (1/D)
  2. FORTEO [Suspect]
     Active Substance: TERIPARATIDE
     Indication: OSTEOPOROSIS
     Dosage: 20 UG, DAILY (1/D)
  3. FLU                                /01389801/ [Concomitant]

REACTIONS (8)
  - Fall [Recovered/Resolved]
  - Fall [Recovered/Resolved]
  - Pain [Unknown]
  - Influenza [Unknown]
  - Ligament sprain [Unknown]
  - Scratch [Unknown]
  - Feeling abnormal [Unknown]
  - Fall [Recovered/Resolved]

NARRATIVE: CASE EVENT DATE: 200908
